FAERS Safety Report 5367178-7 (Version None)
Quarter: 2007Q2

REPORT INFORMATION
  Report Type: 
  Country: None (occurrence: None)
  Receive Date: 20070620
  Receipt Date: 20070620
  Transmission Date: 20071010
  Serious: Yes (Hospitalization)
  Sender: FDA-Public Use
  Company Number: None

PATIENT
  Age: 56 Year
  Sex: Male

DRUGS (1)
  1. CLOPIDOGREL [Suspect]
     Indication: STENT PLACEMENT
     Dosage: 75MG EVERY DAY PO
     Route: 048
     Dates: start: 20060801, end: 20070507

REACTIONS (3)
  - ANAEMIA [None]
  - HAEMORRHAGE [None]
  - IRON DEFICIENCY [None]
